FAERS Safety Report 5089530-X (Version None)
Quarter: 2006Q3

REPORT INFORMATION
  Report Type: 
  Country: None (occurrence: None)
  Receive Date: 20060822
  Receipt Date: 20060810
  Transmission Date: 20061208
  Serious: Yes (Other)
  Sender: FDA-Public Use
  Company Number: 2006087558

PATIENT
  Age: 75 Year
  Sex: Female
  Weight: 50.8029 kg

DRUGS (11)
  1. DILANTIN KAPSEAL [Suspect]
     Indication: EPILEPSY
     Dosage: 300 MG (300 MG, 1 IN 1 D), ORAL
     Route: 048
     Dates: start: 19460101
  2. PHENYTOIN SODIUM [Suspect]
     Indication: EPILEPSY
     Dosage: 300 MG (300 MG, 1 IN 1 D), ORAL
     Route: 048
     Dates: start: 20060705
  3. PHENOBARBITAL TAB [Concomitant]
  4. TOPROL-XL [Concomitant]
  5. NORVASC [Concomitant]
  6. METHIMAZOLE [Concomitant]
  7. CLARINEX [Concomitant]
  8. COMBIVENT [Concomitant]
  9. ADVAIR DISKUS 100/50 [Concomitant]
  10. ACTONEL [Concomitant]
  11. DYAZIDE [Concomitant]

REACTIONS (3)
  - CONVULSION [None]
  - DRUG DISPENSING ERROR [None]
  - PHARMACEUTICAL PRODUCT COMPLAINT [None]
